FAERS Safety Report 15597824 (Version 4)
Quarter: 2022Q4

REPORT INFORMATION
  Report Type: Spontaneous
  Country: US (occurrence: None)
  Receive Date: 20181108
  Receipt Date: 20221014
  Transmission Date: 20230113
  Serious: Yes (Hospitalization, Other)
  Sender: FDA-Public Use
  Company Number: 2018SF43690

PATIENT
  Age: 21635 Day
  Sex: Male

DRUGS (59)
  1. PRILOSEC OTC [Suspect]
     Active Substance: OMEPRAZOLE MAGNESIUM
     Indication: Gastrooesophageal reflux disease
     Route: 048
     Dates: start: 2003
  2. PRILOSEC OTC [Suspect]
     Active Substance: OMEPRAZOLE MAGNESIUM
     Indication: Gastrooesophageal reflux disease
     Route: 048
     Dates: start: 2013, end: 2018
  3. PRILOSEC OTC [Suspect]
     Active Substance: OMEPRAZOLE MAGNESIUM
     Indication: Gastrooesophageal reflux disease
     Dosage: GENERIC
     Route: 048
     Dates: start: 2017, end: 2018
  4. PRILOSEC OTC [Suspect]
     Active Substance: OMEPRAZOLE MAGNESIUM
     Indication: Gastrooesophageal reflux disease
     Route: 048
     Dates: start: 20130320
  5. PRILOSEC [Suspect]
     Active Substance: OMEPRAZOLE MAGNESIUM
     Indication: Gastrooesophageal reflux disease
     Route: 048
     Dates: end: 2003
  6. CRESTOR [Concomitant]
     Active Substance: ROSUVASTATIN CALCIUM
     Indication: Blood cholesterol increased
     Dates: start: 2011, end: 2013
  7. AMINOCAPROIC ACID/SULFAMETHOXAZOLE SODIUM/DIPOTASSIUM GLYCYRRHIZATE/CH [Concomitant]
  8. CYCLOBENZAPRINE [Concomitant]
     Active Substance: CYCLOBENZAPRINE
     Indication: Pain
     Dates: start: 2011
  9. CHOLINE/OXITRIPTAN/THEOBROMA CACAO/GLUTAMIC ACID/TRAZODONE/VITIS VINIF [Concomitant]
     Indication: Depression
     Dates: start: 2012, end: 2015
  10. TESTOSTERONE [Concomitant]
     Active Substance: TESTOSTERONE
  11. NAPROXEN [Concomitant]
     Active Substance: NAPROXEN
  12. DULOXETINE [Concomitant]
     Active Substance: DULOXETINE
  13. CIPROFLOXACIN [Concomitant]
     Active Substance: CIPROFLOXACIN
  14. NICOTINE [Concomitant]
     Active Substance: NICOTINE
     Indication: Smoking cessation therapy
     Dates: start: 2017, end: 2021
  15. CETIRIZINE HYDROCHLORIDE [Concomitant]
     Active Substance: CETIRIZINE HYDROCHLORIDE
  16. ARIPIPRAZOLE [Concomitant]
     Active Substance: ARIPIPRAZOLE
  17. ACETAMINOPHEN\OXYCODONE HYDROCHLORIDE [Concomitant]
     Active Substance: ACETAMINOPHEN\OXYCODONE HYDROCHLORIDE
  18. VALACYCLOVIR [Concomitant]
     Active Substance: VALACYCLOVIR HYDROCHLORIDE
     Dates: start: 2015
  19. KETOROLAC:OXYCODINE [Concomitant]
     Indication: Pain
     Dates: start: 2015
  20. KETOROLAC:OXYCODINE [Concomitant]
     Indication: Pain
     Dates: start: 2018
  21. KETOROLAC:OXYCODINE [Concomitant]
     Indication: Pain
     Dates: start: 2011
  22. KETOROLAC:OXYCODINE [Concomitant]
     Indication: Pain
     Dates: start: 2015, end: 2017
  23. CLOTRIMAZOLE [Concomitant]
     Active Substance: CLOTRIMAZOLE
  24. TIZANIDINE HYDROCHLORIDE [Concomitant]
     Active Substance: TIZANIDINE HYDROCHLORIDE
  25. FLUTICASONE [Concomitant]
     Active Substance: FLUTICASONE
     Dates: start: 2012
  26. AMLODIPINE BESYLATE [Concomitant]
     Active Substance: AMLODIPINE BESYLATE
     Indication: Hypertension
     Dates: start: 2012
  27. AZITHROMYCIN [Concomitant]
     Active Substance: AZITHROMYCIN
  28. BELSOMRA [Concomitant]
     Active Substance: SUVOREXANT
  29. BOOSTRIX [Concomitant]
     Active Substance: TETANUS TOXOID, REDUCED DIPHTHERIA TOXOID AND ACELLULAR PERTUSSIS VACCINE, ADSORBED ANTIGENS
  30. CEFDINIR [Concomitant]
     Active Substance: CEFDINIR
  31. HYDROCODONE [Concomitant]
     Active Substance: HYDROCODONE
  32. LEVOFLOXACIN [Concomitant]
     Active Substance: LEVOFLOXACIN
  33. LISINOPRIL [Concomitant]
     Active Substance: LISINOPRIL
     Indication: Hypertension
     Dates: start: 2012
  34. MELOXICAM [Concomitant]
     Active Substance: MELOXICAM
     Indication: Arthritis
     Dates: start: 2011, end: 2014
  35. MUPIROCIN [Concomitant]
     Active Substance: MUPIROCIN
  36. OFLOXACIN [Concomitant]
     Active Substance: OFLOXACIN
  37. PRAVASTATIN [Concomitant]
     Active Substance: PRAVASTATIN
     Indication: Blood cholesterol
     Dates: start: 2013
  38. TAMSULOSIN [Concomitant]
     Active Substance: TAMSULOSIN
  39. VITAMIN D2 [Concomitant]
     Active Substance: ERGOCALCIFEROL
  40. ZOLPIDEM [Concomitant]
     Active Substance: ZOLPIDEM TARTRATE
  41. ZOSTAVAX [Concomitant]
     Active Substance: VARICELLA-ZOSTER VIRUS STRAIN OKA/MERCK LIVE ANTIGEN
  42. ZYRTEC-D [Concomitant]
     Active Substance: CETIRIZINE HYDROCHLORIDE\PSEUDOEPHEDRINE HYDROCHLORIDE
  43. BUPROPION [Concomitant]
     Active Substance: BUPROPION
     Indication: Depression
     Dates: start: 2011, end: 2014
  44. LABETALOL [Concomitant]
     Active Substance: LABETALOL\LABETALOL HYDROCHLORIDE
  45. VANCOMYCIN [Concomitant]
     Active Substance: VANCOMYCIN
  46. SODIUM CHLORIDE [Concomitant]
     Active Substance: SODIUM CHLORIDE
  47. ONDANSETRON [Concomitant]
     Active Substance: ONDANSETRON
  48. LORATADINE [Concomitant]
     Active Substance: LORATADINE
  49. VASOPRESSIN [Concomitant]
     Active Substance: VASOPRESSIN
  50. PHENYLEPHRINE [Concomitant]
     Active Substance: PHENYLEPHRINE HYDROCHLORIDE
  51. LEVOPHED [Concomitant]
     Active Substance: NOREPINEPHRINE BITARTRATE
  52. METOPROLOL [Concomitant]
     Active Substance: METOPROLOL
  53. AZELASTINE [Concomitant]
     Active Substance: AZELASTINE
  54. ACETAMINOPHEN [Concomitant]
     Active Substance: ACETAMINOPHEN
     Indication: Arthralgia
  55. ACETAMINOPHEN [Concomitant]
     Active Substance: ACETAMINOPHEN
     Indication: Back pain
  56. CYMBALTA [Concomitant]
     Active Substance: DULOXETINE HYDROCHLORIDE
     Indication: Depression
     Dates: start: 2011
  57. TAGAMET [Concomitant]
     Active Substance: CIMETIDINE
  58. TUMS [Concomitant]
     Active Substance: CALCIUM CARBONATE
     Dates: start: 1970, end: 1980
  59. ROLAIDS [Concomitant]
     Active Substance: CALCIUM CARBONATE\MAGNESIUM HYDROXIDE
     Dates: start: 1970, end: 1980

REACTIONS (3)
  - Acute kidney injury [Not Recovered/Not Resolved]
  - Chronic kidney disease [Not Recovered/Not Resolved]
  - End stage renal disease [Not Recovered/Not Resolved]

NARRATIVE: CASE EVENT DATE: 20170108
